FAERS Safety Report 8831351 (Version 2)
Quarter: 2013Q1

REPORT INFORMATION
  Report Type: Spontaneous
  Country: US (occurrence: US)
  Receive Date: 20121009
  Receipt Date: 20130108
  Transmission Date: 20140127
  Serious: Yes (Hospitalization, Other)
  Sender: FDA-Public Use
  Company Number: US-BAYER-2012-104186

PATIENT
  Age: 17 Year
  Sex: Female
  Weight: 49.89 kg

DRUGS (3)
  1. YAZ [Suspect]
     Indication: ACNE
     Dosage: UNK
     Dates: start: 200808, end: 201002
  2. YAZ [Suspect]
     Indication: MENSTRUAL CYCLE MANAGEMENT
  3. MIRCETTE [Concomitant]

REACTIONS (6)
  - Cholelithiasis [None]
  - Cholecystitis chronic [None]
  - Pancreatitis [None]
  - Colitis [None]
  - Pain [None]
  - Pain [None]
